FAERS Safety Report 25445765 (Version 3)
Quarter: 2025Q4

REPORT INFORMATION
  Report Type: Spontaneous
  Country: JP (occurrence: JP)
  Receive Date: 20250617
  Receipt Date: 20251008
  Transmission Date: 20260117
  Serious: Yes (Hospitalization, Other)
  Sender: UCB
  Company Number: JP-UCBJ-CD202507768UCBPHAPROD

PATIENT
  Age: 68 Year
  Sex: Male

DRUGS (4)
  1. LEVETIRACETAM [Suspect]
     Active Substance: LEVETIRACETAM
     Indication: Epilepsy
     Dosage: 500 MILLIGRAM, 2X/DAY (BID)
     Route: 048
  2. LEVETIRACETAM [Suspect]
     Active Substance: LEVETIRACETAM
     Dosage: 3000 MILLIGRAM (DAILY)
     Route: 048
  3. VIMPAT [Suspect]
     Active Substance: LACOSAMIDE
     Indication: Epilepsy
     Dosage: 100 MILLIGRAM, 2X/DAY (BID)
     Route: 048
  4. PERAMPANEL [Concomitant]
     Active Substance: PERAMPANEL
     Indication: Product used for unknown indication
     Dosage: 2 MILLIGRAM

REACTIONS (7)
  - Magnetic resonance imaging head abnormal [Recovered/Resolved]
  - Status epilepticus [Recovered/Resolved]
  - Atrioventricular block complete [Recovered/Resolved]
  - Sinus bradycardia [Recovered/Resolved]
  - Cognitive disorder [Recovered/Resolved]
  - Bradyarrhythmia [Recovered/Resolved]
  - Therapeutic response decreased [Unknown]
